FAERS Safety Report 17841644 (Version 2)
Quarter: 2020Q2

REPORT INFORMATION
  Report Type: Spontaneous
  Country: FR (occurrence: FR)
  Receive Date: 20200529
  Receipt Date: 20200611
  Transmission Date: 20200714
  Serious: Yes (Hospitalization, Other)
  Sender: FDA-Public Use
  Company Number: FR-PFIZER INC-2020205717

PATIENT
  Age: 69 Year
  Sex: Male

DRUGS (17)
  1. PERFALGAN [Suspect]
     Active Substance: ACETAMINOPHEN
     Indication: BODY TEMPERATURE INCREASED
     Dosage: 1 G, 4X/DAY
  2. EUPRESSYL [URAPIDIL] [Suspect]
     Active Substance: URAPIDIL
     Dosage: UNK
  3. CATAPRESSAN [CLONIDINE HYDROCHLORIDE] [Suspect]
     Active Substance: CLONIDINE HYDROCHLORIDE
     Dosage: UNK
  4. TRANXENE [Suspect]
     Active Substance: CLORAZEPATE DIPOTASSIUM
     Dosage: 2.5 MG, PER HOUR
  5. TAZOCILLINE [Suspect]
     Active Substance: PIPERACILLIN SODIUM\TAZOBACTAM SODIUM
     Dosage: UNK
  6. LOVENOX [Suspect]
     Active Substance: ENOXAPARIN SODIUM
     Dosage: 2 DF, 1X/DAY (2X/DAY (8000 UI)
     Route: 058
  7. ROCEPHINE [Suspect]
     Active Substance: CEFTRIAXONE SODIUM
     Dosage: UNK
  8. TAVANIC [Suspect]
     Active Substance: LEVOFLOXACIN
     Dosage: 500 MG, 2X/DAY
  9. MUCOMYST [Suspect]
     Active Substance: ACETYLCYSTEINE
     Dosage: 4 DF, 1X/DAY, (1 DF 4X/DAY (SACHET SNG))
  10. DEXTRO [DEXTROMETHORPHAN HYDROBROMIDE] [Suspect]
     Active Substance: DEXTROMETHORPHAN HYDROBROMIDE
     Dosage: UNK
  11. ZITHROMAX [Suspect]
     Active Substance: AZITHROMYCIN DIHYDRATE
     Dosage: UNK
  12. CLAVENTIN [CLAVULANATE POTASSIUM;TICARCILLIN DISODIUM] [Suspect]
     Active Substance: CLAVULANATE POTASSIUM\TICARCILLIN DISODIUM
     Dosage: UNK
  13. BACTRIM [Suspect]
     Active Substance: SULFAMETHOXAZOLE\TRIMETHOPRIM
     Dosage: UNK
  14. FORTUM [CEFTAZIDIME] [Suspect]
     Active Substance: CEFTAZIDIME
     Dosage: 2 G, 3X/DAY
  15. LEDERFOLINE [Suspect]
     Active Substance: LEUCOVORIN CALCIUM
     Dosage: UNK
  16. INEXIUM [ESOMEPRAZOLE MAGNESIUM] [Suspect]
     Active Substance: ESOMEPRAZOLE MAGNESIUM
     Dosage: 40 MG, 1X/DAY
     Route: 042
  17. PLAQUENIL [Suspect]
     Active Substance: HYDROXYCHLOROQUINE SULFATE
     Dosage: UNK

REACTIONS (15)
  - Localised oedema [Recovering/Resolving]
  - Spinal disorder [Recovering/Resolving]
  - Inflammation [Recovering/Resolving]
  - Pneumonia [Recovering/Resolving]
  - Aspartate aminotransferase increased [Unknown]
  - Severe acute respiratory syndrome [Recovering/Resolving]
  - Pseudomonas infection [Recovering/Resolving]
  - Stenotrophomonas infection [Recovering/Resolving]
  - Drug ineffective [Unknown]
  - Alanine aminotransferase increased [Recovering/Resolving]
  - Hepatic function abnormal [Recovering/Resolving]
  - Acute respiratory distress syndrome [Recovering/Resolving]
  - Hypoxia [Recovering/Resolving]
  - Blood bilirubin increased [Unknown]
  - Coronavirus infection [Recovering/Resolving]
